FAERS Safety Report 7056306-3 (Version None)
Quarter: 2010Q4

REPORT INFORMATION
  Report Type: 
  Country: None (occurrence: None)
  Receive Date: 20101021
  Receipt Date: 20101011
  Transmission Date: 20110411
  Serious: Yes (Hospitalization)
  Sender: FDA-Public Use
  Company Number: ES-ELI_LILLY_AND_COMPANY-ES201010002586

PATIENT
  Sex: Female
  Weight: 72 kg

DRUGS (7)
  1. FORTEO [Suspect]
     Indication: OSTEOPOROSIS
     Dosage: 20 UG, DAILY (1/D)
     Route: 058
     Dates: start: 20090914, end: 20100901
  2. METFORMIN HCL [Concomitant]
     Indication: DIABETES MELLITUS
     Dosage: UNK, EVERY 8 HRS
     Route: 048
  3. INDAPAMIDA [Concomitant]
     Indication: HYPERTENSION
     Dosage: UNK, DAILY (1/D)
     Route: 048
  4. CARDYL [Concomitant]
     Indication: HYPERCHOLESTEROLAEMIA
     Dosage: 20 MG, DAILY (1/D)
     Route: 048
  5. ULCESEP [Concomitant]
     Dosage: UNK, DAILY (1/D)
     Route: 048
  6. KARVEZIDE [Concomitant]
     Indication: HYPERTENSION
     Dosage: UNK, DAILY (1/D)
     Route: 048
  7. IDALPREM [Concomitant]
     Indication: INSOMNIA
     Dosage: HALF TABLET, DAILY (1/D)
     Route: 048

REACTIONS (1)
  - DEEP VEIN THROMBOSIS [None]
